FAERS Safety Report 18957143 (Version 1)
Quarter: 2021Q1

REPORT INFORMATION
  Report Type: Spontaneous
  Country: ID (occurrence: ID)
  Receive Date: 20210302
  Receipt Date: 20210302
  Transmission Date: 20210420
  Serious: Yes (Hospitalization)
  Sender: FDA-Public Use
  Company Number: ID-IPCA LABORATORIES LIMITED-IPC-2021-ID-000474

PATIENT

DRUGS (2)
  1. METFORMIN [Suspect]
     Active Substance: METFORMIN HYDROCHLORIDE
     Indication: GESTATIONAL DIABETES
     Dosage: 500 MILLIGRAM, BID
     Route: 048
  2. AMOXICILLIN. [Suspect]
     Active Substance: AMOXICILLIN
     Indication: ABSCESS
     Dosage: 500 MILLIGRAM, TID
     Route: 048

REACTIONS (5)
  - Infection [Recovered/Resolved]
  - Swelling [Recovered/Resolved]
  - Maternal exposure during pregnancy [Unknown]
  - Pyrexia [Recovered/Resolved]
  - Drug ineffective [Unknown]
